FAERS Safety Report 23804180 (Version 1)
Quarter: 2024Q2

REPORT INFORMATION
  Report Type: Spontaneous
  Country: US (occurrence: US)
  Receive Date: 20240501
  Receipt Date: 20240501
  Transmission Date: 20240716
  Serious: Yes (Hospitalization)
  Sender: FDA-Public Use
  Company Number: US-GE HEALTHCARE-2024CSU004275

PATIENT
  Age: 61 Year
  Sex: Female
  Weight: 118.5 kg

DRUGS (1)
  1. OMNIPAQUE [Suspect]
     Active Substance: IOHEXOL
     Indication: Stent placement
     Dosage: 160 ML, TOTAL
     Route: 065
     Dates: start: 20240422, end: 20240422

REACTIONS (4)
  - Agitation [Recovering/Resolving]
  - Contrast encephalopathy [Recovering/Resolving]
  - Headache [Recovering/Resolving]
  - Confusional state [Recovering/Resolving]

NARRATIVE: CASE EVENT DATE: 20240422
